FAERS Safety Report 12936699 (Version 1)
Quarter: 2016Q4

REPORT INFORMATION
  Report Type: Spontaneous
  Country: JP (occurrence: JP)
  Receive Date: 20161114
  Receipt Date: 20161114
  Transmission Date: 20170207
  Serious: Yes (Hospitalization)
  Sender: FDA-Public Use
  Company Number: JP-GLAXOSMITHKLINE-JP2016JPN163947

PATIENT
  Age: 62 Year
  Sex: Male

DRUGS (1)
  1. VALTREX [Suspect]
     Active Substance: VALACYCLOVIR HYDROCHLORIDE
     Indication: HERPES ZOSTER
     Dosage: 1000 MG, 1D
     Route: 048

REACTIONS (4)
  - Vomiting [Unknown]
  - Hallucination [Unknown]
  - Toxicity to various agents [Unknown]
  - Prescribed overdose [Unknown]
